FAERS Safety Report 12348543 (Version 2)
Quarter: 2016Q2

REPORT INFORMATION
  Report Type: Spontaneous
  Country: US (occurrence: US)
  Receive Date: 20160509
  Receipt Date: 20160511
  Transmission Date: 20160815
  Serious: Yes (Other)
  Sender: FDA-Public Use
  Company Number: US-TEVA-657437USA

PATIENT
  Age: 53 Year
  Sex: Female
  Weight: 52.21 kg

DRUGS (4)
  1. AMBIEN [Concomitant]
     Active Substance: ZOLPIDEM TARTRATE
  2. PROAIR HFA [Suspect]
     Active Substance: ALBUTEROL SULFATE
     Indication: BRONCHITIS
     Route: 065
     Dates: start: 20160422
  3. VOLTAREN [Concomitant]
     Active Substance: DICLOFENAC SODIUM
  4. PREMPRO [Concomitant]
     Active Substance: ESTROGENS, CONJUGATED\MEDROXYPROGESTERONE ACETATE

REACTIONS (6)
  - Dehydration [Unknown]
  - Wolff-Parkinson-White syndrome [Unknown]
  - Palpitations [Unknown]
  - Heart rate increased [Unknown]
  - Chest pain [Unknown]
  - Dyspnoea [Unknown]

NARRATIVE: CASE EVENT DATE: 20160423
